FAERS Safety Report 12622610 (Version 1)
Quarter: 2016Q3

REPORT INFORMATION
  Report Type: Spontaneous
  Country: IT (occurrence: IT)
  Receive Date: 20160804
  Receipt Date: 20160804
  Transmission Date: 20161109
  Serious: Yes (Other)
  Sender: FDA-Public Use
  Company Number: IT-BRISTOL-MYERS SQUIBB COMPANY-BMS-2016-053694

PATIENT
  Age: 53 Year
  Sex: Female

DRUGS (7)
  1. ATAZANAVIR SULFATE [Suspect]
     Active Substance: ATAZANAVIR SULFATE
     Dosage: 200 MG, UNK
     Route: 065
  2. OMBITASVIR [Suspect]
     Active Substance: OMBITASVIR
     Indication: HIV INFECTION
     Dosage: 25 MG, QD
     Route: 065
  3. ATAZANAVIR SULFATE [Suspect]
     Active Substance: ATAZANAVIR SULFATE
     Indication: HIV INFECTION
     Dosage: 300 MG, QD
     Route: 065
  4. RITONAVIR. [Suspect]
     Active Substance: RITONAVIR
     Indication: HIV INFECTION
     Dosage: 1 DF, QD
     Route: 065
     Dates: start: 2009
  5. RIBAVIRIN. [Suspect]
     Active Substance: RIBAVIRIN
     Indication: HIV INFECTION
     Route: 065
  6. PARITAPREVIR [Suspect]
     Active Substance: PARITAPREVIR
     Indication: HIV INFECTION
     Route: 065
  7. DASABUVIR [Suspect]
     Active Substance: DASABUVIR
     Indication: HIV INFECTION
     Dosage: 250 MG, BID
     Route: 065

REACTIONS (3)
  - Hyperbilirubinaemia [Recovered/Resolved]
  - Off label use [Unknown]
  - Drug interaction [Unknown]
